FAERS Safety Report 8940396 (Version 5)
Quarter: 2013Q1

REPORT INFORMATION
  Report Type: Spontaneous
  Country: US (occurrence: US)
  Receive Date: 20121203
  Receipt Date: 20130204
  Transmission Date: 20140127
  Serious: Yes (Hospitalization, Other)
  Sender: FDA-Public Use
  Company Number: US-009507513-1205USA00710

PATIENT
  Sex: Female
  Weight: 46.71 kg

DRUGS (7)
  1. FOSAMAX [Suspect]
     Indication: OSTEOPOROSIS
     Dosage: 10 MG, QD
     Route: 048
     Dates: start: 199608, end: 200404
  2. FOSAMAX [Suspect]
     Dosage: 70 MG, QW
     Route: 048
     Dates: start: 200603, end: 201108
  3. VITAMINS (UNSPECIFIED) [Concomitant]
     Dosage: UNK, QW
  4. CYANOCOBALAMIN [Concomitant]
     Dosage: 1000 MG, TIW
  5. ASCORBIC ACID [Concomitant]
     Dosage: UNK, TIW
  6. CALCIUM CARBONATE (+) VITAMIN D (UNSPECIFIED) [Concomitant]
     Dosage: 600 MG, BID
  7. CALCIUM CARBONATE (+) VITAMIN D (UNSPECIFIED) [Concomitant]
     Dosage: 400 MG, BID

REACTIONS (103)
  - Intramedullary rod insertion [Unknown]
  - Internal fixation of fracture [Unknown]
  - Vertebroplasty [Unknown]
  - Spinal fusion surgery [Unknown]
  - Myocardial infarction [Unknown]
  - Myocardial infarction [Unknown]
  - Myocardial infarction [Unknown]
  - Jaw operation [Unknown]
  - Rotator cuff repair [Unknown]
  - Surgery [Unknown]
  - Surgery [Unknown]
  - Surgery [Unknown]
  - Surgery [Unknown]
  - Cataract operation [Unknown]
  - Gastroenteritis [Unknown]
  - Hernia hiatus repair [Unknown]
  - Muscle hernia [Unknown]
  - Hernia repair [Unknown]
  - Catheterisation cardiac [Unknown]
  - Spinal fusion surgery [Unknown]
  - Spinal corpectomy [Unknown]
  - Hysterectomy [Unknown]
  - Colporrhaphy [Unknown]
  - Appendicectomy [Unknown]
  - Mammoplasty [Unknown]
  - Tonsillectomy [Unknown]
  - Perineal operation [Unknown]
  - Femoral hernia repair [Unknown]
  - Inguinal hernia repair [Unknown]
  - Muscle operation [Unknown]
  - Femur fracture [Unknown]
  - Pubis fracture [Unknown]
  - Fracture nonunion [Unknown]
  - Fracture nonunion [Unknown]
  - Compression fracture [Unknown]
  - Compression fracture [Unknown]
  - Device malfunction [Unknown]
  - Jaw disorder [Unknown]
  - Surgical failure [Unknown]
  - Scoliosis [Unknown]
  - Peptic ulcer [Unknown]
  - Thyroid disorder [Unknown]
  - Neuropathy peripheral [Unknown]
  - Intervertebral disc degeneration [Unknown]
  - Exostosis [Unknown]
  - Cervical radiculopathy [Unknown]
  - Kyphosis [Unknown]
  - Hypercholesterolaemia [Unknown]
  - Cystocele [Unknown]
  - Diverticulitis [Unknown]
  - Arthritis [Unknown]
  - Myocardial ischaemia [Unknown]
  - Cataract [Unknown]
  - Depression [Unknown]
  - Rib fracture [Unknown]
  - Rib fracture [Unknown]
  - Sternal fracture [Unknown]
  - Pneumothorax [Unknown]
  - Spondylolisthesis [Unknown]
  - Laryngeal polyp [Unknown]
  - Polypectomy [Unknown]
  - Hernia [Unknown]
  - Laparoscopy [Unknown]
  - Breast cyst [Unknown]
  - Breast cyst excision [Unknown]
  - Debridement [Unknown]
  - Angina pectoris [Unknown]
  - Nervousness [Unknown]
  - Sleep disorder [Unknown]
  - Pain [Unknown]
  - Capsular contracture associated with breast implant [Unknown]
  - Jaw cyst [Unknown]
  - Hypertension [Unknown]
  - Colon adenoma [Unknown]
  - Carotid artery disease [Unknown]
  - Asthma [Not Recovered/Not Resolved]
  - Cough [Unknown]
  - Dyspnoea [Unknown]
  - Urinary tract infection [Unknown]
  - Mitral valve incompetence [Not Recovered/Not Resolved]
  - Aortic valve incompetence [Unknown]
  - Tricuspid valve incompetence [Unknown]
  - Biopsy [Unknown]
  - Pulmonary arterial hypertension [Unknown]
  - Arthralgia [Unknown]
  - Gastrooesophageal reflux disease [Unknown]
  - Nausea [Unknown]
  - Drug ineffective [Unknown]
  - Dyspepsia [Unknown]
  - Muscle spasms [Unknown]
  - Pruritus [Unknown]
  - Constipation [Unknown]
  - Oedema peripheral [Unknown]
  - Dermatitis contact [Unknown]
  - Coronary artery disease [Unknown]
  - Anaemia postoperative [Unknown]
  - Left ventricular dysfunction [Unknown]
  - Cardiac enzymes increased [Unknown]
  - Electrocardiogram abnormal [Unknown]
  - Osteopenia [Unknown]
  - Intervertebral disc degeneration [Unknown]
  - Facet joint syndrome [Unknown]
  - Fat embolism [Unknown]
